FAERS Safety Report 21364549 (Version 1)
Quarter: 2022Q3

REPORT INFORMATION
  Report Type: Spontaneous
  Country: US (occurrence: US)
  Receive Date: 20220922
  Receipt Date: 20220922
  Transmission Date: 20221026
  Serious: No
  Sender: FDA-Public Use
  Company Number: US-PFIZER INC-202201176731

PATIENT
  Age: 80 Year
  Sex: Female

DRUGS (11)
  1. PAXLOVID [Suspect]
     Active Substance: NIRMATRELVIR\RITONAVIR
     Indication: COVID-19 treatment
     Dosage: UNK, 2X/DAY
     Dates: start: 20220903, end: 20220907
  2. GLUCOSAMINE [Concomitant]
     Active Substance: GLUCOSAMINE
     Dosage: UNK
     Dates: start: 20220903, end: 20220920
  3. FISH OIL [Concomitant]
     Active Substance: FISH OIL
     Dosage: UNK
     Dates: start: 20220903, end: 20220920
  4. CALCIUM CITRATE [Concomitant]
     Active Substance: CALCIUM CITRATE
     Dosage: UNK
     Dates: start: 20220903, end: 20220920
  5. MAGNESIUM CITRATE [Concomitant]
     Active Substance: MAGNESIUM CITRATE
     Dosage: UNK
     Dates: start: 20220903, end: 20220920
  6. LUTEIN ZEAXANTHIN [Concomitant]
     Dosage: UNK
     Dates: start: 20220903, end: 20220920
  7. GINGER ROOT EXTRACT [Concomitant]
     Dosage: UNK
     Dates: start: 20220903, end: 20220920
  8. ZINC COPPER BALANCE [COPPER CITRATE;COPPER MALATE;ZINC CITRATE;ZINC FU [Concomitant]
     Dosage: UNK
     Dates: start: 20220908, end: 20220920
  9. HERBALS\TURMERIC [Concomitant]
     Active Substance: HERBALS\TURMERIC
     Dosage: UNK
     Dates: start: 20220903, end: 20220920
  10. BIOPERINE [PIPER NIGRUM FRUIT] [Concomitant]
     Dosage: UNK
     Dates: start: 20220903, end: 20220920
  11. SELENIUM [Concomitant]
     Active Substance: SELENIUM
     Dosage: UNK
     Dates: start: 20220908, end: 20220920

REACTIONS (2)
  - COVID-19 [Not Recovered/Not Resolved]
  - Disease recurrence [Not Recovered/Not Resolved]

NARRATIVE: CASE EVENT DATE: 20220919
